FAERS Safety Report 12464994 (Version 3)
Quarter: 2016Q3

REPORT INFORMATION
  Report Type: Report from Study
  Country: CA (occurrence: CA)
  Receive Date: 20160614
  Receipt Date: 20160802
  Transmission Date: 20161109
  Serious: Yes (Hospitalization, Other)
  Sender: FDA-Public Use
  Company Number: CA-ABBVIE-16K-028-1642824-00

PATIENT
  Age: 68 Year
  Sex: Female
  Weight: 104.6 kg

DRUGS (5)
  1. HUMIRA [Suspect]
     Active Substance: ADALIMUMAB
     Indication: RHEUMATOID ARTHRITIS
     Route: 058
     Dates: start: 20160513, end: 20160513
  2. HUMIRA [Suspect]
     Active Substance: ADALIMUMAB
     Indication: SPONDYLITIS
  3. SYNTHROID [Concomitant]
     Active Substance: LEVOTHYROXINE SODIUM
     Indication: HYPOTHYROIDISM
     Route: 048
  4. NAPROXEN. [Suspect]
     Active Substance: NAPROXEN
     Indication: SPONDYLITIS
  5. NAPROXEN. [Suspect]
     Active Substance: NAPROXEN
     Indication: RHEUMATOID ARTHRITIS
     Route: 048

REACTIONS (16)
  - Atrial fibrillation [Unknown]
  - Pain in extremity [Unknown]
  - Synovial cyst [Unknown]
  - Arthritis [Unknown]
  - Stress [Unknown]
  - Peripheral swelling [Recovered/Resolved]
  - Supraventricular extrasystoles [Unknown]
  - Blood pressure abnormal [Not Recovered/Not Resolved]
  - Oedema [Unknown]
  - Cardiac failure congestive [Unknown]
  - Arthralgia [Not Recovered/Not Resolved]
  - Synovial rupture [Unknown]
  - Peripheral venous disease [Unknown]
  - Cardiac disorder [Recovered/Resolved]
  - Joint swelling [Recovered/Resolved]
  - Red blood cell sedimentation rate increased [Unknown]

NARRATIVE: CASE EVENT DATE: 2016
